FAERS Safety Report 19094749 (Version 1)
Quarter: 2021Q2

REPORT INFORMATION
  Report Type: Spontaneous
  Country: GB (occurrence: GB)
  Receive Date: 20210406
  Receipt Date: 20210406
  Transmission Date: 20210717
  Serious: Yes (Other)
  Sender: FDA-Public Use
  Company Number: GB-TORRENT-00025335

PATIENT
  Age: 32 Year
  Sex: Female

DRUGS (4)
  1. FEXOFENADINE HYDROCHLORIDE. [Concomitant]
     Active Substance: FEXOFENADINE HYDROCHLORIDE
     Indication: ILL-DEFINED DISORDER
     Dosage: UNKNOWN
  2. ARIPIPRAZOLE. [Suspect]
     Active Substance: ARIPIPRAZOLE
     Indication: MOOD ALTERED
     Dosage: 5 MG
     Route: 048
     Dates: start: 20210122, end: 20210318
  3. MIRTAZAPINE HYDROCHLORIDE [Concomitant]
     Active Substance: MIRTAZAPINE
     Indication: ILL-DEFINED DISORDER
     Dosage: UNKNOWN
  4. MIRABEGRON [Concomitant]
     Active Substance: MIRABEGRON
     Indication: ILL-DEFINED DISORDER
     Dosage: UNKNOWN

REACTIONS (2)
  - Myopia [Not Recovered/Not Resolved]
  - Vision blurred [Not Recovered/Not Resolved]
